FAERS Safety Report 5062073-5 (Version None)
Quarter: 2006Q3

REPORT INFORMATION
  Report Type: 
  Country: None (occurrence: None)
  Receive Date: 20060703
  Receipt Date: 20051004
  Transmission Date: 20061208
  Serious: No
  Sender: FDA-Public Use
  Company Number: 2005S1009861

PATIENT
  Age: 73 Year
  Sex: Male

DRUGS (14)
  1. CLOZAPINE [Suspect]
     Dosage: 200 MG;QID;PO
     Route: 048
     Dates: start: 20011114
  2. SALMETEROL XINAFOATE [Concomitant]
  3. VENLAFAXINE HCL [Concomitant]
  4. ALPRAZOLAM [Concomitant]
  5. MIRTAZAPINE [Concomitant]
  6. DOXAZOSIN MESYLATE [Concomitant]
  7. ACETYLSALICYLIC ACID SRT [Concomitant]
  8. FAMOTIDINE [Concomitant]
  9. VITAMINS NOS/MINERALS NOS [Concomitant]
  10. DOCUSATE SODIUM [Concomitant]
  11. GLIPIZIDE [Concomitant]
  12. PHENYTOIN SODIUM [Concomitant]
  13. DOCUSATE SODIUM/SENNA [Concomitant]
  14. VALSARTAN [Concomitant]

REACTIONS (1)
  - GRANULOCYTOPENIA [None]
